FAERS Safety Report 11303152 (Version 1)
Quarter: 2015Q3

REPORT INFORMATION
  Report Type: Spontaneous
  Country: US (occurrence: None)
  Receive Date: 20150723
  Receipt Date: 20150723
  Transmission Date: 20151125
  Serious: Yes (Hospitalization)
  Sender: FDA-Public Use
  Company Number: None

PATIENT
  Age: 52 Year
  Sex: Female
  Weight: 76.8 kg

DRUGS (2)
  1. ESTROBLEND [Suspect]
     Active Substance: DIETARY SUPPLEMENT
     Indication: MENOPAUSE
     Route: 048
  2. DICLOFENAC [Suspect]
     Active Substance: DICLOFENAC
     Indication: PAIN
     Route: 048

REACTIONS (2)
  - Jaundice [None]
  - Drug-induced liver injury [None]

NARRATIVE: CASE EVENT DATE: 20140728
